FAERS Safety Report 23252743 (Version 1)
Quarter: 2023Q4

REPORT INFORMATION
  Report Type: Spontaneous
  Country: US (occurrence: None)
  Receive Date: 20231201
  Receipt Date: 20231201
  Transmission Date: 20240109
  Serious: Yes (unspecified)
  Sender: FDA-Public Use
  Company Number: None

PATIENT
  Age: 63 Year
  Sex: Female
  Weight: 59.85 kg

DRUGS (3)
  1. GAMMAPLEX [Suspect]
     Active Substance: HUMAN IMMUNOGLOBULIN G
     Indication: Multifocal motor neuropathy
     Dosage: OTHER FREQUENCY : Q3 WEEKS;?
     Route: 042
     Dates: start: 20231003, end: 20231025
  2. Gammaplex 10% 40gm [Concomitant]
     Dates: start: 20231003, end: 20231003
  3. Gammaplex 10% 40gm [Concomitant]
     Dates: end: 20231025

REACTIONS (1)
  - Infusion related reaction [None]

NARRATIVE: CASE EVENT DATE: 20231003
